FAERS Safety Report 5678123-9 (Version None)
Quarter: 2008Q1

REPORT INFORMATION
  Report Type: 
  Country: None (occurrence: None)
  Receive Date: 20080319
  Receipt Date: 20080305
  Transmission Date: 20080703
  Serious: Yes (Life-Threatening, Hospitalization, Disabling)
  Sender: FDA-Public Use
  Company Number: CERZ-1000052

PATIENT
  Age: 3 Month
  Sex: Male
  Weight: 7 kg

DRUGS (21)
  1. CEREZYME [Suspect]
     Indication: GAUCHER'S DISEASE
     Dosage: 600 U, INTRAVENOUS; 400 U, Q2W, INTRAVENOUS
     Route: 042
     Dates: start: 20060927, end: 20080101
  2. CEREZYME [Suspect]
     Indication: GAUCHER'S DISEASE
     Dosage: 600 U, INTRAVENOUS; 400 U, Q2W, INTRAVENOUS
     Route: 042
     Dates: start: 20080128
  3. ANTIBIOTICS-RESSISTANT LACTIC ACID BACTERIAE [Concomitant]
  4. ZONISAMIDE [Concomitant]
  5. MIXED KILLED BACTGERIAL PREPARATION [Concomitant]
  6. CARBOCISTEINE (CARBOSCISTEINE) [Concomitant]
  7. PROCATEROL HYDROCHLOIDE (PROCATEROL HYDROCHLORIDE) [Concomitant]
  8. AMBROXOL HYDROCHLORIDE (AMBROXOL HYDROCHLORIDE) [Concomitant]
  9. DIAZEPAM [Concomitant]
  10. TRICHLORETHYL PHOSPHATE SODIUM [Concomitant]
  11. CLONAZEPAM [Concomitant]
  12. CEFOTIAM HYDROCHLORIDE [Concomitant]
  13. SODIUM BICARBONATE IN PLASTIC CONTAINER [Concomitant]
  14. SEVOFLURANE [Concomitant]
  15. NITROUS OXIDE W/ OXYGEN [Concomitant]
  16. VECURONIUM BROMIDE [Concomitant]
  17. ATROPINE SULFATE [Concomitant]
  18. CARBAMAZEPINE [Concomitant]
  19. LEVOFLOXACIN [Concomitant]
  20. TOBRAMYCIN [Concomitant]
  21. CEFDITOREN PIVOXIL (CEFDITOREN PIVOXIL) [Concomitant]

REACTIONS (10)
  - APNOEIC ATTACK [None]
  - BRONCHITIS [None]
  - CONVULSION [None]
  - DEHYDRATION [None]
  - GASTROENTERITIS [None]
  - NASOPHARYNGITIS [None]
  - PNEUMONIA ASPIRATION [None]
  - PNEUMONIA RESPIRATORY SYNCYTIAL VIRAL [None]
  - RESPIRATORY ARREST [None]
  - RESPIRATORY FAILURE [None]
